FAERS Safety Report 17083007 (Version 1)
Quarter: 2019Q4

REPORT INFORMATION
  Report Type: Spontaneous
  Country: US (occurrence: US)
  Receive Date: 20191127
  Receipt Date: 20191127
  Transmission Date: 20200122
  Serious: Yes (Other)
  Sender: FDA-Public Use
  Company Number: US-IMPRIMIS NJOF-2077253

PATIENT

DRUGS (1)
  1. TRIAMCINOLONE-MOXIFLOXACIN (15/1) MG/ML [Suspect]
     Active Substance: MOXIFLOXACIN\TRIAMCINOLONE
     Route: 031

REACTIONS (1)
  - Visual impairment [Unknown]

NARRATIVE: CASE EVENT DATE: 20191022
